FAERS Safety Report 6016590-1 (Version None)
Quarter: 2008Q4

REPORT INFORMATION
  Report Type: 
  Country: None (occurrence: None)
  Receive Date: 20081222
  Receipt Date: 20081211
  Transmission Date: 20090506
  Serious: Yes (Other)
  Sender: FDA-Public Use
  Company Number: PHHY2008BG21858

PATIENT
  Age: 52 Year
  Sex: Female
  Weight: 70 kg

DRUGS (3)
  1. ZOLEDRONIC ACID [Suspect]
     Indication: OSTEOPOROSIS POSTMENOPAUSAL
     Dosage: UNK
     Dates: start: 20080801
  2. CALCIUM [Concomitant]
  3. VITAMIN D [Concomitant]

REACTIONS (12)
  - ARTHRALGIA [None]
  - ASTHENIA [None]
  - CHEST PAIN [None]
  - DIARRHOEA [None]
  - DYSPNOEA [None]
  - HEADACHE [None]
  - MYALGIA [None]
  - NAUSEA [None]
  - PALPITATIONS [None]
  - PYREXIA [None]
  - TACHYCARDIA [None]
  - THIRST [None]
